FAERS Safety Report 17645843 (Version 3)
Quarter: 2020Q2

REPORT INFORMATION
  Report Type: Spontaneous
  Country: US (occurrence: US)
  Receive Date: 20200408
  Receipt Date: 20200514
  Transmission Date: 20200713
  Serious: Yes (Life-Threatening, Hospitalization, Other)
  Sender: FDA-Public Use
  Company Number: US-PFIZER INC-2020139847

PATIENT
  Age: 64 Year
  Sex: Female

DRUGS (2)
  1. LEVOTHYROXINE SODIUM. [Suspect]
     Active Substance: LEVOTHYROXINE SODIUM
     Dosage: UNK (PILLS)
     Route: 048
  2. AMLODIPINE BESILATE [Suspect]
     Active Substance: AMLODIPINE BESYLATE
     Dosage: UNK (PILLS)
     Route: 048

REACTIONS (11)
  - Hypotension [Recovering/Resolving]
  - Nodal rhythm [Recovering/Resolving]
  - Liver injury [Unknown]
  - Overdose [Recovering/Resolving]
  - Heart rate decreased [Recovering/Resolving]
  - Acute kidney injury [Unknown]
  - Leukocytosis [Unknown]
  - Metabolic acidosis [Unknown]
  - Shock [Recovering/Resolving]
  - Dyspnoea [Unknown]
  - Rhabdomyolysis [Unknown]
